FAERS Safety Report 6566912-8 (Version None)
Quarter: 2010Q1

REPORT INFORMATION
  Report Type: 
  Country: None (occurrence: None)
  Receive Date: 20100202
  Receipt Date: 20100122
  Transmission Date: 20100710
  Serious: Yes (Hospitalization)
  Sender: FDA-Public Use
  Company Number: US-ROCHE-682431

PATIENT
  Sex: Male
  Weight: 114.3 kg

DRUGS (9)
  1. BEVACIZUMAB [Suspect]
     Indication: NON-SMALL CELL LUNG CANCER
     Route: 042
     Dates: start: 20100111
  2. PEMETREXED [Suspect]
     Indication: NON-SMALL CELL LUNG CANCER
     Route: 042
     Dates: start: 20100111
  3. CARBOPLATIN [Suspect]
     Indication: NON-SMALL CELL LUNG CANCER
     Route: 042
     Dates: start: 20100111
  4. GLUCOPHAGE [Concomitant]
  5. OMEPRAZOLE [Concomitant]
  6. AVANDIA [Concomitant]
  7. COREG [Concomitant]
  8. AMARYL [Concomitant]
  9. LOTREL [Concomitant]

REACTIONS (2)
  - ANAEMIA [None]
  - HYPOGLYCAEMIA [None]
